FAERS Safety Report 8191108-6 (Version None)
Quarter: 2012Q1

REPORT INFORMATION
  Report Type: 
  Country: None (occurrence: None)
  Receive Date: 20120307
  Receipt Date: 20120301
  Transmission Date: 20120608
  Serious: Yes (Other)
  Sender: FDA-Public Use
  Company Number: TH-VIIV HEALTHCARE LIMITED-A0968434A

PATIENT
  Sex: Female
  Weight: 55 kg

DRUGS (9)
  1. ACETAMINOPHEN [Concomitant]
     Indication: UPPER RESPIRATORY TRACT INFECTION
     Dates: start: 20101228, end: 20101230
  2. LAMIVUDINE (EPIVIR HBV) [Suspect]
     Indication: HIV INFECTION
     Dates: start: 20100309
  3. EFAVIRENZ [Suspect]
     Indication: HIV INFECTION
     Dates: start: 20100309
  4. TRUVADA [Suspect]
     Indication: HIV INFECTION
     Dates: start: 20101104, end: 20110214
  5. ATAZANAVIR [Suspect]
     Indication: HIV INFECTION
     Dates: start: 20101104, end: 20110214
  6. RITONAVIR [Suspect]
     Indication: HIV INFECTION
     Dosage: 150MG PER DAY
     Dates: start: 20101104, end: 20110214
  7. DEXTROMETHORPHAN [Concomitant]
     Indication: UPPER RESPIRATORY TRACT INFECTION
     Dates: start: 20101229, end: 20101230
  8. LEVONORGESTREL + ETHINYL ESTRADIOL [Suspect]
     Indication: ORAL CONTRACEPTION
     Route: 048
     Dates: start: 20091201
  9. ALESSE [Concomitant]
     Indication: CONTRACEPTION
     Dates: start: 20091201

REACTIONS (5)
  - ABORTION THREATENED [None]
  - MATERNAL EXPOSURE DURING PREGNANCY [None]
  - PREMATURE DELIVERY [None]
  - UNINTENDED PREGNANCY [None]
  - DRUG INTERACTION [None]
